FAERS Safety Report 25677529 (Version 1)
Quarter: 2025Q3

REPORT INFORMATION
  Report Type: Spontaneous
  Country: US (occurrence: None)
  Receive Date: 20250813
  Receipt Date: 20250813
  Transmission Date: 20251020
  Serious: Yes (Other)
  Sender: FDA-CTU
  Company Number: None

PATIENT
  Age: 36 Year
  Sex: Female
  Weight: 95.9 kg

DRUGS (7)
  1. INFED [Suspect]
     Active Substance: IRON DEXTRAN
     Indication: Iron deficiency anaemia
     Route: 042
     Dates: start: 20250806, end: 20250806
  2. Alive Calcium-Vitamin D3-K2 PO daily [Concomitant]
  3. Famotidine 20 mg PO daily [Concomitant]
  4. Ferrous Sulfate 325 mg PO daily [Concomitant]
  5. Magnesium Glycinate 100 mg PO daily [Concomitant]
  6. Mounjaro 2.5 mg SQ weekly [Concomitant]
  7. Zinc glycinate 20 mg PO daily [Concomitant]

REACTIONS (11)
  - Infusion related reaction [None]
  - Chest pain [None]
  - Dyspnoea [None]
  - Oropharyngeal pain [None]
  - Nausea [None]
  - Back pain [None]
  - Swelling face [None]
  - Arthralgia [None]
  - Headache [None]
  - Abdominal pain [None]
  - Diarrhoea [None]

NARRATIVE: CASE EVENT DATE: 20250806
